FAERS Safety Report 5086928-0 (Version None)
Quarter: 2006Q3

REPORT INFORMATION
  Report Type: 
  Country: None (occurrence: None)
  Receive Date: 20060821
  Receipt Date: 20060804
  Transmission Date: 20061208
  Serious: Yes (Disabling)
  Sender: FDA-Public Use
  Company Number: 0603129US

PATIENT
  Sex: Female

DRUGS (2)
  1. BOTOX [Suspect]
     Indication: SKIN WRINKLING
  2. BOTOX [Concomitant]

REACTIONS (3)
  - INJURY [None]
  - OFF LABEL USE [None]
  - VOCAL CORD PARALYSIS [None]
